FAERS Safety Report 10264549 (Version 1)
Quarter: 2014Q2

REPORT INFORMATION
  Report Type: Spontaneous
  Country: US (occurrence: US)
  Receive Date: 20140627
  Receipt Date: 20140627
  Transmission Date: 20141212
  Serious: No
  Sender: FDA-Public Use
  Company Number: US-BRACCO-010728

PATIENT
  Age: 46 Year
  Sex: Female

DRUGS (1)
  1. MULTIHANCE [Suspect]
     Dosage: ACCIDENTAL EXPOSURE DROPLET IN LEFT EYE
     Route: 031
     Dates: start: 20140313

REACTIONS (3)
  - Accidental exposure to product [Unknown]
  - Eye irritation [Unknown]
  - Eye irritation [Unknown]
